FAERS Safety Report 20773698 (Version 1)
Quarter: 2022Q2

REPORT INFORMATION
  Report Type: Spontaneous
  Country: US (occurrence: None)
  Receive Date: 20220429
  Receipt Date: 20220429
  Transmission Date: 20220721
  Serious: Yes (Other)
  Sender: FDA-Public Use
  Company Number: None

PATIENT
  Age: 38 Year
  Sex: Female
  Weight: 72 kg

DRUGS (5)
  1. TUBERSOL [Suspect]
     Active Substance: TUBERCULIN PURIFIED PROTEIN DERIVATIVE
     Indication: Tuberculosis
     Route: 058
     Dates: start: 20220425, end: 20220425
  2. Jolessa 0.15/0.03 daily [Concomitant]
  3. Armour Thyroid 75 mg daily [Concomitant]
  4. Methylcobalamin/Folate 1 cc IM biweekly [Concomitant]
  5. Ritual multivitamin Apis Mellifica 200 ck [Concomitant]

REACTIONS (8)
  - Injection site haemorrhage [None]
  - Injection site pain [None]
  - Injection site swelling [None]
  - Injection site erythema [None]
  - Injection site pruritus [None]
  - Injection site bruising [None]
  - Throat irritation [None]
  - Pharyngeal swelling [None]

NARRATIVE: CASE EVENT DATE: 20220428
